FAERS Safety Report 10266220 (Version 1)
Quarter: 2014Q2

REPORT INFORMATION
  Report Type: Spontaneous
  Country: PL (occurrence: PL)
  Receive Date: 20140627
  Receipt Date: 20140627
  Transmission Date: 20141212
  Serious: Yes (Other)
  Sender: FDA-Public Use
  Company Number: PHHY2014PL077046

PATIENT
  Age: 60 Year
  Sex: Male
  Weight: 70 kg

DRUGS (3)
  1. OXALIPLATIN [Suspect]
     Indication: COLON CANCER
     Dosage: 154 MG, EVERY 2 WEEKS
     Dates: start: 201401
  2. FLUOROURACIL EBEWE [Suspect]
     Dosage: 1816 MG, UNK
     Route: 042
  3. LEUCOVORIN CALCIUM [Suspect]
     Dosage: 181 MG
     Route: 042

REACTIONS (1)
  - Neutropenia [Not Recovered/Not Resolved]
